FAERS Safety Report 7838446-1 (Version None)
Quarter: 2011Q4

REPORT INFORMATION
  Report Type: 
  Country: None (occurrence: None)
  Receive Date: 20111024
  Receipt Date: 20111018
  Transmission Date: 20120403
  Serious: Yes (Other)
  Sender: FDA-Public Use
  Company Number: US-MERCK-1110USA02611

PATIENT
  Age: 53 Year
  Sex: Male
  Weight: 125 kg

DRUGS (2)
  1. PRISTIQ [Suspect]
     Indication: DEPRESSION
     Route: 048
     Dates: start: 20110601
  2. PRINIVIL [Suspect]
     Indication: HYPERTENSION
     Route: 048
     Dates: end: 20110920

REACTIONS (16)
  - AGGRESSION [None]
  - ANXIETY [None]
  - HYPERHIDROSIS [None]
  - NAUSEA [None]
  - DRUG INTERACTION [None]
  - AGITATION [None]
  - ANGER [None]
  - DEPRESSION [None]
  - MYALGIA [None]
  - PRESYNCOPE [None]
  - DIZZINESS [None]
  - DEHYDRATION [None]
  - ARTHRALGIA [None]
  - ABNORMAL BEHAVIOUR [None]
  - NEGATIVE THOUGHTS [None]
  - IRRITABILITY [None]
